FAERS Safety Report 8829928 (Version 2)
Quarter: 2013Q1

REPORT INFORMATION
  Report Type: Spontaneous
  Country: US (occurrence: US)
  Receive Date: 20121008
  Receipt Date: 20130104
  Transmission Date: 20140127
  Serious: No
  Sender: FDA-Public Use
  Company Number: US-TEVA-360634USA

PATIENT
  Sex: Female

DRUGS (1)
  1. PROAIR HFA [Suspect]
     Dosage: UNKNOWN
     Route: 055

REACTIONS (3)
  - Dyspnoea [Unknown]
  - Mobility decreased [Unknown]
  - Ear disorder [Unknown]
